FAERS Safety Report 6348318-X (Version None)
Quarter: 2009Q3

REPORT INFORMATION
  Report Type: 
  Country: None (occurrence: None)
  Receive Date: 20090908
  Receipt Date: 20090820
  Transmission Date: 20100115
  Serious: Yes (Hospitalization)
  Sender: FDA-Public Use
  Company Number: 2008AL010789

PATIENT
  Age: 76 Year
  Sex: Female

DRUGS (23)
  1. DIGOXIN [Suspect]
     Dosage: 0.125MG, MON-WED-FRI, PO; 0.25MG, DAILY, PO
     Route: 048
  2. TOPROL-XL [Concomitant]
  3. CARDIZEM [Concomitant]
  4. LASIX [Concomitant]
  5. ROCEPHIN [Concomitant]
  6. LOVENOX [Concomitant]
  7. PROTONIX [Concomitant]
  8. RESTORIL [Concomitant]
  9. VITAMIN D [Concomitant]
  10. CALCIUM [Concomitant]
  11. COUMADIN [Concomitant]
  12. POTASSIUM CHLORIDE [Concomitant]
  13. GLIMEPIRIDE [Concomitant]
  14. ROBITUSSIN [Concomitant]
  15. OMNICEF [Concomitant]
  16. FLONASE [Concomitant]
  17. DIOVAN [Concomitant]
  18. SYMBICORT [Concomitant]
  19. AMARYL [Concomitant]
  20. THEOPHYLLINE [Concomitant]
  21. ENTERIC [Concomitant]
  22. XOPENEX [Concomitant]
  23. ATROVENT [Concomitant]

REACTIONS (31)
  - ACTIVATED PARTIAL THROMBOPLASTIN TIME PROLONGED [None]
  - ACUTE PRERENAL FAILURE [None]
  - ATRIAL FIBRILLATION [None]
  - CARDIAC FAILURE CONGESTIVE [None]
  - CAROTID ARTERY STENOSIS [None]
  - CATARACT OPERATION [None]
  - CHOLECYSTITIS CHRONIC [None]
  - CHOLELITHIASIS [None]
  - CHRONIC OBSTRUCTIVE PULMONARY DISEASE [None]
  - CONDITION AGGRAVATED [None]
  - CONTUSION [None]
  - DECREASED APPETITE [None]
  - DEHYDRATION [None]
  - DYSPEPSIA [None]
  - DYSPNOEA EXERTIONAL [None]
  - EXCORIATION [None]
  - FATIGUE [None]
  - FEELING ABNORMAL [None]
  - GASTROENTERITIS [None]
  - GENERAL PHYSICAL HEALTH DETERIORATION [None]
  - HAEMORRHOIDS [None]
  - HYPERTENSIVE HEART DISEASE [None]
  - HYPOTENSION [None]
  - INTERNATIONAL NORMALISED RATIO INCREASED [None]
  - MALAISE [None]
  - MULTIPLE INJURIES [None]
  - PROCEDURAL NAUSEA [None]
  - RASH [None]
  - SKIN INJURY [None]
  - SYNCOPE [None]
  - THERAPEUTIC AGENT TOXICITY [None]
